FAERS Safety Report 15772034 (Version 1)
Quarter: 2018Q4

REPORT INFORMATION
  Report Type: Spontaneous
  Country: US (occurrence: US)
  Receive Date: 20181228
  Receipt Date: 20181228
  Transmission Date: 20190205
  Serious: No
  Sender: FDA-Public Use
  Company Number: US-009507513-1812USA006122

PATIENT
  Sex: Male

DRUGS (13)
  1. POTASSIUM CHLORIDE. [Concomitant]
     Active Substance: POTASSIUM CHLORIDE
  2. ISOSORBIDE DINITRATE. [Concomitant]
     Active Substance: ISOSORBIDE DINITRATE
  3. OMEPRAZOLE. [Concomitant]
     Active Substance: OMEPRAZOLE
  4. ANORO ELLIPTA [Concomitant]
     Active Substance: UMECLIDINIUM BROMIDE\VILANTEROL TRIFENATATE
  5. DILTIAZEM ER [Concomitant]
     Active Substance: DILTIAZEM
  6. PREDNISONE. [Concomitant]
     Active Substance: PREDNISONE
  7. LASIX [Concomitant]
     Active Substance: FUROSEMIDE
  8. NITROGLYCERIN. [Concomitant]
     Active Substance: NITROGLYCERIN
  9. FOSAMAX [Suspect]
     Active Substance: ALENDRONATE SODIUM
     Route: 048
  10. ASPERCREME NOS [Concomitant]
     Active Substance: MENTHOL\TROLAMINE SALICYLATE
  11. LYRICA [Concomitant]
     Active Substance: PREGABALIN
  12. PROLIA [Concomitant]
     Active Substance: DENOSUMAB
  13. RESTASIS [Concomitant]
     Active Substance: CYCLOSPORINE

REACTIONS (1)
  - Rash [Unknown]
